FAERS Safety Report 7472162-3 (Version None)
Quarter: 2011Q2

REPORT INFORMATION
  Report Type: 
  Country: None (occurrence: None)
  Receive Date: 20110511
  Receipt Date: 20110208
  Transmission Date: 20111010
  Serious: No
  Sender: FDA-Public Use
  Company Number: A0912502A

PATIENT
  Age: 76 Year
  Sex: Female

DRUGS (3)
  1. TYKERB [Suspect]
     Indication: BREAST CANCER
     Dosage: 5TAB PER DAY
     Route: 048
     Dates: start: 20101001
  2. XELODA [Concomitant]
  3. XANAX [Concomitant]

REACTIONS (3)
  - INGROWING NAIL [None]
  - RASH [None]
  - NAIL INFECTION [None]
